FAERS Safety Report 23249213 (Version 2)
Quarter: 2023Q4

REPORT INFORMATION
  Report Type: Report from Study
  Country: CA (occurrence: CA)
  Receive Date: 20231201
  Receipt Date: 20231208
  Transmission Date: 20240109
  Serious: No
  Sender: FDA-Public Use
  Company Number: CA-JNJFOC-20231131991

PATIENT
  Age: 24 Year
  Sex: Female

DRUGS (2)
  1. SIMPONI [Suspect]
     Active Substance: GOLIMUMAB
     Indication: Ankylosing spondylitis
     Route: 058
     Dates: start: 20231104
  2. SIMPONI [Suspect]
     Active Substance: GOLIMUMAB
     Indication: Crohn^s disease

REACTIONS (5)
  - Device leakage [Unknown]
  - Drug delivery system malfunction [Unknown]
  - Accidental exposure to product [Unknown]
  - Underdose [Unknown]
  - Arthralgia [Not Recovered/Not Resolved]

NARRATIVE: CASE EVENT DATE: 20231101
